FAERS Safety Report 11871130 (Version 1)
Quarter: 2015Q4

REPORT INFORMATION
  Report Type: Spontaneous
  Country: IT (occurrence: IT)
  Receive Date: 20151228
  Receipt Date: 20151228
  Transmission Date: 20160305
  Serious: Yes (Death, Hospitalization, Other)
  Sender: FDA-Public Use
  Company Number: IT-PFIZER INC-2015457220

PATIENT
  Age: 50 Year
  Sex: Male

DRUGS (2)
  1. AXITINIB [Suspect]
     Active Substance: AXITINIB
     Indication: METASTATIC RENAL CELL CARCINOMA
     Dosage: 5 MG, 2X/DAY
     Dates: start: 20141120, end: 20141203
  2. AXITINIB [Suspect]
     Active Substance: AXITINIB
     Dosage: 7 MG, 2X/DAY
     Dates: start: 20141204, end: 20141213

REACTIONS (9)
  - Metastatic renal cell carcinoma [Fatal]
  - Blood pressure increased [Recovering/Resolving]
  - Blindness [Recovering/Resolving]
  - Disease progression [Fatal]
  - Paraplegia [Unknown]
  - Seizure [Unknown]
  - Vomiting [Recovering/Resolving]
  - Posterior reversible encephalopathy syndrome [Recovering/Resolving]
  - Sopor [Recovering/Resolving]

NARRATIVE: CASE EVENT DATE: 20141213
